FAERS Safety Report 18894591 (Version 1)
Quarter: 2021Q1

REPORT INFORMATION
  Report Type: Spontaneous
  Country: US (occurrence: US)
  Receive Date: 20210215
  Receipt Date: 20210215
  Transmission Date: 20210420
  Serious: Yes (Other)
  Sender: FDA-Public Use
  Company Number: US-SA-2021SA048107

PATIENT
  Sex: Female

DRUGS (1)
  1. AUBAGIO [Suspect]
     Active Substance: TERIFLUNOMIDE
     Indication: MULTIPLE SCLEROSIS
     Dosage: 14 MG, QD
     Route: 048

REACTIONS (6)
  - Unevaluable event [Unknown]
  - Product dose omission issue [Unknown]
  - Fall [Unknown]
  - Dysgraphia [Unknown]
  - Balance disorder [Unknown]
  - Headache [Recovering/Resolving]

NARRATIVE: CASE EVENT DATE: 202101
